FAERS Safety Report 8537417-X (Version None)
Quarter: 2012Q3

REPORT INFORMATION
  Report Type: 
  Country: None (occurrence: None)
  Receive Date: 20120725
  Receipt Date: 20120625
  Transmission Date: 20120928
  Serious: No
  Sender: FDA-Public Use
  Company Number: US-MYLANLABS-2012S1013113

PATIENT
  Age: 64 Year
  Sex: Male
  Weight: 108.86 kg

DRUGS (2)
  1. ALFUZOSIN HYDROCHLORIDE [Suspect]
     Indication: PROSTATOMEGALY
     Route: 048
     Dates: start: 20120501
  2. BLOOD PRESSURE MEDICATION [Concomitant]
     Indication: BLOOD PRESSURE

REACTIONS (2)
  - DRUG EFFECT DECREASED [None]
  - DYSURIA [None]
